FAERS Safety Report 16700341 (Version 1)
Quarter: 2019Q3

REPORT INFORMATION
  Report Type: Spontaneous
  Country: US (occurrence: US)
  Receive Date: 20190814
  Receipt Date: 20190814
  Transmission Date: 20191004
  Serious: No
  Sender: FDA-Public Use
  Company Number: US-SHIRE-US201925317

PATIENT
  Age: 19 Year
  Sex: Male
  Weight: 58.05 kg

DRUGS (16)
  1. CALCIUM [Concomitant]
     Active Substance: CALCIUM
     Indication: FAMILIAL PERIODIC PARALYSIS
  2. PENTASA [Suspect]
     Active Substance: MESALAMINE
     Indication: CROHN^S DISEASE
     Dosage: 500 MILLIGRAM (6 TIMES PER DAY)
     Route: 048
     Dates: start: 201812
  3. TRIAMTERENE HCTZ [Concomitant]
     Active Substance: HYDROCHLOROTHIAZIDE\TRIAMTERENE
     Indication: FAMILIAL PERIODIC PARALYSIS
  4. FLOVENT [Concomitant]
     Active Substance: FLUTICASONE PROPIONATE
     Indication: ABDOMINAL DISCOMFORT
  5. PHOSPHORUS [Concomitant]
     Active Substance: PHOSPHORUS
     Indication: FAMILIAL PERIODIC PARALYSIS
  6. LEVALBUTEROL [LEVOSALBUTAMOL] [Concomitant]
     Active Substance: LEVALBUTEROL
     Indication: ASTHMA
  7. POTASSIUM CHLORIDE. [Concomitant]
     Active Substance: POTASSIUM CHLORIDE
     Indication: FAMILIAL PERIODIC PARALYSIS
  8. NEXIUM I.V. [Concomitant]
     Active Substance: ESOMEPRAZOLE SODIUM
     Indication: ABDOMINAL DISCOMFORT
  9. FLUDROCORTISONE [Concomitant]
     Active Substance: FLUDROCORTISONE
     Indication: ADDISON^S DISEASE
  10. FLOVENT [Concomitant]
     Active Substance: FLUTICASONE PROPIONATE
     Indication: PNEUMONITIS
  11. FLOVENT [Concomitant]
     Active Substance: FLUTICASONE PROPIONATE
     Indication: FAMILIAL PERIODIC PARALYSIS
  12. MAGNESIUM [Concomitant]
     Active Substance: MAGNESIUM
     Indication: FAMILIAL PERIODIC PARALYSIS
  13. LEVALBUTEROL [LEVOSALBUTAMOL] [Concomitant]
     Active Substance: LEVALBUTEROL
     Indication: FAMILIAL PERIODIC PARALYSIS
  14. CROMOLYN SODIUM. [Concomitant]
     Active Substance: CROMOLYN SODIUM
     Indication: MASTOCYTOSIS
  15. CROMOLYN SODIUM. [Concomitant]
     Active Substance: CROMOLYN SODIUM
     Indication: CROHN^S DISEASE
  16. FLUDROCORTISONE [Concomitant]
     Active Substance: FLUDROCORTISONE
     Indication: BONE TUBERCULOSIS

REACTIONS (7)
  - Off label use [Not Recovered/Not Resolved]
  - Sluggishness [Not Recovered/Not Resolved]
  - Fatigue [Unknown]
  - Nausea [Not Recovered/Not Resolved]
  - Blood potassium decreased [Unknown]
  - Malaise [Not Recovered/Not Resolved]
  - Hypersensitivity [Not Recovered/Not Resolved]

NARRATIVE: CASE EVENT DATE: 201812
